FAERS Safety Report 8028170 (Version 5)
Quarter: 2013Q1

REPORT INFORMATION
  Report Type: Spontaneous
  Country: JP (occurrence: JP)
  Receive Date: 20110711
  Receipt Date: 20130308
  Transmission Date: 20140127
  Serious: Yes (Other)
  Sender: FDA-Public Use
  Company Number: JP-JNJFOC-20110702246

PATIENT
  Age: 61 Year
  Sex: Female
  Weight: 46 kg

DRUGS (8)
  1. DOXORUBICIN HYDROCHLORIDE (DOXIL) [Suspect]
     Indication: OVARIAN CANCER RECURRENT
     Dosage: CYCLE 2
     Route: 042
  2. DOXORUBICIN HYDROCHLORIDE (DOXIL) [Suspect]
     Indication: OVARIAN CANCER RECURRENT
     Dosage: CYCLE 1, 16 MG PER DAY FOR 6 DAYS AND 8 MG PER DAY FOR 2 DAYS
     Route: 042
  3. DEXAMETHASONE [Concomitant]
     Indication: PROPHYLAXIS
     Route: 065
  4. DEXAMETHASONE [Concomitant]
     Indication: PROPHYLAXIS
     Route: 065
  5. VITAMIN B6 [Concomitant]
     Indication: PROPHYLAXIS
     Dosage: FOR 7 DAYS IN EACH COURSE
     Route: 065
  6. VITAMIN B6 [Concomitant]
     Indication: PROPHYLAXIS
     Route: 065
  7. MOSAPRIDE CITRATE [Concomitant]
     Indication: HYPERLIPIDAEMIA
     Route: 065
  8. PRAVASTATIN [Concomitant]
     Indication: HYPERLIPIDAEMIA
     Route: 065

REACTIONS (3)
  - Pneumocystis jirovecii pneumonia [Recovered/Resolved]
  - Platelet count decreased [Unknown]
  - Neutrophil count decreased [Unknown]
